FAERS Safety Report 8773610 (Version 2)
Quarter: 2012Q4

REPORT INFORMATION
  Report Type: 
  Country: US (occurrence: US)
  Receive Date: 20120907
  Receipt Date: 20120907
  Transmission Date: 20130627
  Serious: Yes (Hospitalization, Other)
  Sender: FDA-Public Use
  Company Number: PHEH2012US016814

PATIENT
  Sex: Female

DRUGS (4)
  1. TRILEPTAL [Suspect]
     Dosage: 300 mg, UNK
  2. ALPRAZ [Concomitant]
  3. LORTAB [Concomitant]
  4. HORMONES [Concomitant]

REACTIONS (4)
  - Convulsion [Unknown]
  - Agnosia [Unknown]
  - Feeling abnormal [Unknown]
  - Speech disorder [Unknown]
